FAERS Safety Report 7553211-0 (Version None)
Quarter: 2011Q2

REPORT INFORMATION
  Report Type: 
  Country: None (occurrence: None)
  Receive Date: 20110617
  Receipt Date: 20110609
  Transmission Date: 20111010
  Serious: Yes (Hospitalization, Other)
  Sender: FDA-Public Use
  Company Number: US-BIOGENIDEC-2011BI017839

PATIENT
  Age: 39 Year
  Sex: Female

DRUGS (14)
  1. VITAMIN D [Concomitant]
     Route: 048
  2. VALIUM [Concomitant]
     Route: 048
  3. VALIUM [Concomitant]
  4. ONDANSETRON [Concomitant]
     Route: 048
  5. AVONEX [Suspect]
     Route: 030
     Dates: start: 20030101, end: 20060101
  6. CELLCEPT [Concomitant]
     Indication: MULTIPLE SCLEROSIS
     Route: 048
     Dates: start: 20080101
  7. CITRUCEL [Concomitant]
  8. DRONABINOL [Concomitant]
     Route: 048
  9. PERCOCET [Concomitant]
  10. NEURONTIN [Concomitant]
  11. OXYBUTYNIN CHLORIDE [Concomitant]
     Route: 048
  12. TIZANIDINE HCL [Concomitant]
     Route: 048
  13. CYMBALTA [Concomitant]
     Route: 048
  14. AVONEX [Suspect]
     Indication: MULTIPLE SCLEROSIS
     Route: 030
     Dates: start: 20080301

REACTIONS (26)
  - NEPHROLITHIASIS [None]
  - HYDROTHORAX [None]
  - BLADDER SPASM [None]
  - URINARY INCONTINENCE [None]
  - WOUND DEHISCENCE [None]
  - FAECAL INCONTINENCE [None]
  - HYPERTONIC BLADDER [None]
  - DRUG DELIVERY DEVICE IMPLANTATION [None]
  - POLLAKIURIA [None]
  - GENITAL DISCOMFORT [None]
  - MELANOSIS COLI [None]
  - DYSPAREUNIA [None]
  - DYSURIA [None]
  - BLADDER DILATATION [None]
  - MUSCLE SPASTICITY [None]
  - MYOMECTOMY [None]
  - MICTURITION URGENCY [None]
  - BLADDER PAIN [None]
  - HAEMORRHAGE [None]
  - CONSTIPATION [None]
  - ADENOMA BENIGN [None]
  - URINARY RETENTION [None]
  - POSTOPERATIVE WOUND INFECTION [None]
  - POST PROCEDURAL HAEMORRHAGE [None]
  - PAIN [None]
  - ANAL SPHINCTER ATONY [None]
